FAERS Safety Report 25714492 (Version 1)
Quarter: 2025Q3

REPORT INFORMATION
  Report Type: Spontaneous
  Country: US (occurrence: US)
  Receive Date: 20250822
  Receipt Date: 20250822
  Transmission Date: 20251020
  Serious: No
  Sender: AMGEN
  Company Number: US-AMGEN-USASP2025166880

PATIENT
  Age: 44 Year
  Sex: Female

DRUGS (3)
  1. OTEZLA [Suspect]
     Active Substance: APREMILAST
     Indication: Psoriasis
     Dosage: 30 MILLIGRAM, QD
     Route: 048
  2. MELATONIN [Concomitant]
     Active Substance: MELATONIN
  3. Probiata [Concomitant]

REACTIONS (6)
  - Hypoaesthesia [Recovered/Resolved]
  - Paraesthesia [Unknown]
  - Fatigue [Unknown]
  - Pain [Recovering/Resolving]
  - Product dose omission issue [Unknown]
  - Off label use [Unknown]
